FAERS Safety Report 13961862 (Version 3)
Quarter: 2017Q4

REPORT INFORMATION
  Report Type: Report from Study
  Country: US (occurrence: US)
  Receive Date: 20170912
  Receipt Date: 20171114
  Transmission Date: 20180320
  Serious: Yes (Hospitalization, Other)
  Sender: FDA-Public Use
  Company Number: US-CORCEPT THERAPEUTICS INC.-US-2017CRT000377

PATIENT

DRUGS (7)
  1. ALIMTA [Concomitant]
     Active Substance: PEMETREXED DISODIUM
     Indication: PRODUCT USED FOR UNKNOWN INDICATION
     Dosage: UNK
  2. KORLYM [Suspect]
     Active Substance: MIFEPRISTONE
     Dosage: 300 MG, QD
     Route: 048
     Dates: start: 201708, end: 20171018
  3. COLOCORT [Concomitant]
     Active Substance: HYDROCORTISONE
     Indication: PRODUCT USED FOR UNKNOWN INDICATION
     Dosage: UNK
  4. WARFARIN [Concomitant]
     Active Substance: WARFARIN
     Indication: PRODUCT USED FOR UNKNOWN INDICATION
     Dosage: UNK
  5. KORLYM [Suspect]
     Active Substance: MIFEPRISTONE
     Indication: CUSHING^S SYNDROME
     Dosage: 300 MG, QD
     Route: 048
     Dates: start: 20170504, end: 20170706
  6. KORLYM [Suspect]
     Active Substance: MIFEPRISTONE
     Dosage: 600 MG, QD
     Route: 048
     Dates: start: 20170707, end: 201708
  7. WARFARIN [Concomitant]
     Active Substance: WARFARIN
     Dosage: 2 MG, UNK

REACTIONS (23)
  - Rectal haemorrhage [Unknown]
  - Swelling [Recovered/Resolved]
  - Diarrhoea [Unknown]
  - Blood potassium decreased [Unknown]
  - Colitis [Unknown]
  - Alopecia [Unknown]
  - Clostridium difficile colitis [Recovering/Resolving]
  - Depression [Unknown]
  - Abdominal pain [Unknown]
  - Headache [Unknown]
  - Gait disturbance [Unknown]
  - Pain [Unknown]
  - Lethargy [Unknown]
  - International normalised ratio increased [Recovered/Resolved]
  - Constipation [Not Recovered/Not Resolved]
  - Lethargy [Unknown]
  - Malaise [Unknown]
  - Vomiting [Unknown]
  - Decreased appetite [Unknown]
  - Breast cellulitis [Unknown]
  - Condition aggravated [Unknown]
  - Pyrexia [Unknown]
  - Dizziness [Recovering/Resolving]

NARRATIVE: CASE EVENT DATE: 2017
